FAERS Safety Report 9445458 (Version 1)
Quarter: 2013Q3

REPORT INFORMATION
  Report Type: Report from Study
  Country: CA (occurrence: CA)
  Receive Date: 20130807
  Receipt Date: 20130807
  Transmission Date: 20140515
  Serious: Yes (Other)
  Sender: FDA-Public Use
  Company Number: CA-JNJFOC-20130801621

PATIENT
  Sex: Male
  Weight: 76 kg

DRUGS (3)
  1. REMICADE [Suspect]
     Indication: CROHN^S DISEASE
     Route: 042
  2. REMICADE [Suspect]
     Indication: CROHN^S DISEASE
     Route: 042
     Dates: start: 20090402
  3. IMURAN [Concomitant]
     Route: 048

REACTIONS (3)
  - Dermal cyst [Unknown]
  - Weight increased [Unknown]
  - Therapeutic response decreased [Unknown]
